FAERS Safety Report 5953149-6 (Version None)
Quarter: 2008Q4

REPORT INFORMATION
  Report Type: 
  Country: None (occurrence: None)
  Receive Date: 20081114
  Receipt Date: 20081104
  Transmission Date: 20090506
  Serious: Yes (Hospitalization)
  Sender: FDA-Public Use
  Company Number: FR-WYE-G02510508

PATIENT
  Sex: Female
  Weight: 14 kg

DRUGS (25)
  1. TAZOCILLINE [Suspect]
     Indication: FEBRILE BONE MARROW APLASIA
     Route: 042
     Dates: start: 20080904, end: 20080910
  2. TAZOCILLINE [Suspect]
     Indication: CAECITIS
     Route: 042
     Dates: start: 20080913, end: 20080918
  3. TAZOCILLINE [Suspect]
     Route: 042
     Dates: start: 20080924, end: 20080929
  4. CYTARABINE [Suspect]
     Indication: ACUTE LYMPHOCYTIC LEUKAEMIA
     Dosage: UNKNOWN
     Route: 037
     Dates: start: 20080922, end: 20080924
  5. CYTARABINE [Suspect]
     Dosage: UNKNOWN
     Route: 037
     Dates: start: 20081013, end: 20081013
  6. CYTARABINE [Suspect]
     Dosage: UNKNOWN
     Route: 037
     Dates: start: 20081017, end: 20081020
  7. PURINETHOL [Suspect]
     Indication: ACUTE LYMPHOCYTIC LEUKAEMIA
     Dosage: UNKNOWN
     Route: 048
     Dates: start: 20080920, end: 20080923
  8. PURINETHOL [Suspect]
     Dosage: UNKNOWN
     Route: 048
     Dates: start: 20081013, end: 20081020
  9. ENDOXAN [Suspect]
     Indication: ACUTE LYMPHOCYTIC LEUKAEMIA
     Dosage: UNKNOWN
     Dates: start: 20080920, end: 20080920
  10. METHOTREXATE [Concomitant]
     Indication: ACUTE LYMPHOCYTIC LEUKAEMIA
     Dosage: UNKNOWN
     Route: 037
     Dates: start: 20080922, end: 20080922
  11. HYDROCORTISONE [Concomitant]
     Indication: ACUTE LYMPHOCYTIC LEUKAEMIA
     Dosage: UNKNOWN
     Route: 037
     Dates: start: 20080922, end: 20080922
  12. AMIKLIN [Concomitant]
     Indication: BONE MARROW FAILURE
     Dosage: UNKNOWN
     Dates: start: 20080904, end: 20080910
  13. AMIKLIN [Concomitant]
     Indication: CAECITIS
     Dosage: UNKNOWN
     Dates: start: 20080913, end: 20080918
  14. AMIKLIN [Concomitant]
     Dosage: UNKNOWN
     Dates: start: 20080924, end: 20081014
  15. VFEND [Concomitant]
     Dosage: UNKNOWN
     Dates: start: 20080915, end: 20080920
  16. VANCOMYCIN [Concomitant]
     Dosage: UNKNOWN
     Dates: start: 20080915, end: 20080920
  17. ACETAMINOPHEN [Concomitant]
     Dosage: UNKNOWN
     Route: 048
     Dates: start: 20080920, end: 20080929
  18. INIPOMP [Concomitant]
     Dosage: UNKNOWN
     Dates: start: 20080920, end: 20080929
  19. LASIX [Concomitant]
     Dosage: UNKNOWN
     Dates: start: 20080920, end: 20080929
  20. NUBAIN [Concomitant]
     Dosage: UNKNOWN
     Dates: start: 20080920, end: 20080929
  21. DIAMOX [Concomitant]
     Dosage: UNKNOWN
     Dates: start: 20080920, end: 20080929
  22. LOVENOX [Concomitant]
     Dosage: UNKNOWN
     Dates: start: 20080920, end: 20080929
  23. VITAMIN K1 [Concomitant]
     Dosage: UNKNOWN
     Dates: start: 20080920, end: 20080929
  24. FLAGYL [Concomitant]
     Indication: CAECITIS
     Dosage: UNKNOWN
     Dates: start: 20080924
  25. BACTRIM [Suspect]
     Indication: ANTIFUNGAL PROPHYLAXIS
     Route: 048
     Dates: start: 20080815, end: 20080929

REACTIONS (5)
  - CHOLESTASIS [None]
  - DRUG INEFFECTIVE [None]
  - PRURITUS GENERALISED [None]
  - RASH GENERALISED [None]
  - RASH MORBILLIFORM [None]
